FAERS Safety Report 6274894-1 (Version None)
Quarter: 2009Q3

REPORT INFORMATION
  Report Type: 
  Country: None (occurrence: None)
  Receive Date: 20090721
  Receipt Date: 20070509
  Transmission Date: 20100115
  Serious: Yes (Hospitalization, Other)
  Sender: FDA-Public Use
  Company Number: US-ASTRAZENECA-2006UW26179

PATIENT
  Age: 13941 Day
  Sex: Female
  Weight: 99.3 kg

DRUGS (14)
  1. SEROQUEL [Suspect]
     Indication: SLEEP DISORDER
     Dosage: 25 MG - 100 MG
     Route: 048
     Dates: start: 20020323
  2. SEROQUEL [Suspect]
     Indication: SCHIZOPHRENIA
     Dosage: 25 MG - 100 MG
     Route: 048
     Dates: start: 20020323
  3. SEROQUEL [Suspect]
     Indication: BIPOLAR DISORDER
     Dosage: 25 MG - 100 MG
     Route: 048
     Dates: start: 20020323
  4. SEROQUEL [Suspect]
     Indication: DEPRESSION
     Dosage: 25 MG - 100 MG
     Route: 048
     Dates: start: 20020323
  5. HALDOL [Concomitant]
     Dates: start: 19971101
  6. ZOLOFT [Concomitant]
     Dates: start: 20060105
  7. LISINOPRIL [Concomitant]
     Dosage: 10 MG-20 MG
     Dates: start: 20040126
  8. PROPYL-THIOURACIL [Concomitant]
     Dosage: 50 MG FOUR TABLETS THREE TIMES A DAY
     Dates: start: 20060406
  9. GLYBURIDE [Concomitant]
     Dosage: 5 MG-10 MG
     Route: 048
     Dates: start: 20040126
  10. HYDROXYZINE [Concomitant]
     Route: 048
     Dates: start: 20050120
  11. PAXIL [Concomitant]
     Dates: start: 20020604
  12. LEXAPRO [Concomitant]
     Route: 048
     Dates: start: 20050707
  13. METFORMIN [Concomitant]
     Route: 048
     Dates: start: 20050707
  14. SEASONALE [Concomitant]
     Route: 048
     Dates: start: 20060126

REACTIONS (6)
  - DIABETES MELLITUS [None]
  - DIABETES MELLITUS INADEQUATE CONTROL [None]
  - GESTATIONAL DIABETES [None]
  - HEPATIC ENZYME ABNORMAL [None]
  - HYPERGLYCAEMIA [None]
  - STAPHYLOCOCCAL INFECTION [None]
